FAERS Safety Report 16925188 (Version 2)
Quarter: 2019Q4

REPORT INFORMATION
  Report Type: Spontaneous
  Country: IT (occurrence: IT)
  Receive Date: 20191016
  Receipt Date: 20191018
  Transmission Date: 20200122
  Serious: Yes (Other)
  Sender: FDA-Public Use
  Company Number: IT-SA-2019SA285996

PATIENT
  Age: 73 Year
  Sex: Male

DRUGS (8)
  1. DOCETAXEL. [Suspect]
     Active Substance: DOCETAXEL
     Indication: ADENOCARCINOMA
     Dosage: UNK UNK, QCY
     Dates: start: 2018
  2. 5-FLUOROURACIL [FLUOROURACIL] [Suspect]
     Active Substance: FLUOROURACIL
     Indication: ADENOCARCINOMA
  3. OXALIPLATIN. [Suspect]
     Active Substance: OXALIPLATIN
     Indication: ADENOCARCINOMA
     Dosage: UNK, QCY
     Dates: start: 2018
  4. IRINOTECAN [Suspect]
     Active Substance: IRINOTECAN
     Indication: MIXED ADENONEUROENDOCRINE CARCINOMA
     Dosage: UNK UNK, QCY
     Dates: start: 2018
  5. LEUCOVORIN [FOLINIC ACID] [Suspect]
     Active Substance: LEUCOVORIN
     Indication: MIXED ADENONEUROENDOCRINE CARCINOMA
     Dosage: UNK, QCY
     Dates: start: 2018
  6. LEUCOVORIN [FOLINIC ACID] [Suspect]
     Active Substance: LEUCOVORIN
     Indication: ADENOCARCINOMA
  7. DOCETAXEL. [Suspect]
     Active Substance: DOCETAXEL
     Indication: MIXED ADENONEUROENDOCRINE CARCINOMA
  8. OXALIPLATIN. [Suspect]
     Active Substance: OXALIPLATIN
     Indication: MIXED ADENONEUROENDOCRINE CARCINOMA

REACTIONS (3)
  - Diarrhoea [Recovered/Resolved]
  - Fatigue [Recovered/Resolved]
  - Metastasis [Unknown]
